FAERS Safety Report 7815146-5 (Version None)
Quarter: 2011Q4

REPORT INFORMATION
  Report Type: 
  Country: None (occurrence: None)
  Receive Date: 20111014
  Receipt Date: 20111014
  Transmission Date: 20120403
  Serious: Yes (Other)
  Sender: FDA-Public Use
  Company Number: None

PATIENT
  Sex: Male
  Weight: 84.368 kg

DRUGS (6)
  1. BENICAR HCT [Concomitant]
  2. LOVAZA [Concomitant]
  3. CRESTOR [Concomitant]
  4. WELCHOL [Concomitant]
  5. NORTRIPTYLINE HCL [Suspect]
     Indication: PANIC DISORDER
     Dosage: 3 CAPS
     Route: 048
     Dates: start: 20110805, end: 20110925
  6. CARVEDILOL [Concomitant]

REACTIONS (12)
  - SOMNOLENCE [None]
  - CONSTIPATION [None]
  - DYSPHORIA [None]
  - FAECALOMA [None]
  - DRY MOUTH [None]
  - TREMOR [None]
  - PERSONALITY CHANGE [None]
  - ANXIETY [None]
  - NO THERAPEUTIC RESPONSE [None]
  - URINE FLOW DECREASED [None]
  - STRESS AT WORK [None]
  - PRODUCT SUBSTITUTION ISSUE [None]
